FAERS Safety Report 24604388 (Version 2)
Quarter: 2024Q4

REPORT INFORMATION
  Report Type: Report from Study
  Country: CA (occurrence: CA)
  Receive Date: 20241111
  Receipt Date: 20241202
  Transmission Date: 20250114
  Serious: Yes (Other)
  Sender: JOHNSON AND JOHNSON
  Company Number: CA-JNJFOC-20241117018

PATIENT
  Age: 67 Year
  Sex: Male

DRUGS (2)
  1. AKEEGA [Suspect]
     Active Substance: ABIRATERONE ACETATE\NIRAPARIB TOSYLATE MONOHYDRATE
     Indication: Prostate cancer metastatic
     Route: 048
  2. PREDNISONE [Concomitant]
     Active Substance: PREDNISONE

REACTIONS (2)
  - Kidney infection [Recovering/Resolving]
  - Inappropriate schedule of product administration [Unknown]
